FAERS Safety Report 13825297 (Version 1)
Quarter: 2017Q3

REPORT INFORMATION
  Report Type: Spontaneous
  Country: US (occurrence: US)
  Receive Date: 20170802
  Receipt Date: 20170802
  Transmission Date: 20171127
  Serious: Yes (Hospitalization, Other)
  Sender: FDA-Public Use
  Company Number: None

PATIENT
  Age: 31 Year
  Sex: Female
  Weight: 86 kg

DRUGS (3)
  1. PREGABALIN. [Concomitant]
     Active Substance: PREGABALIN
  2. CONCERTA [Concomitant]
     Active Substance: METHYLPHENIDATE HYDROCHLORIDE
  3. CLARITHROMYCIN 500MG [Suspect]
     Active Substance: CLARITHROMYCIN
     Indication: LOWER RESPIRATORY TRACT INFECTION
     Dosage: ?          QUANTITY:14 TABLET(S);?
     Route: 048
     Dates: start: 20170729, end: 20170801

REACTIONS (16)
  - Vomiting [None]
  - Balance disorder [None]
  - Tachycardia [None]
  - Chest discomfort [None]
  - Insomnia [None]
  - Dizziness [None]
  - Gait inability [None]
  - Diarrhoea [None]
  - Mental status changes [None]
  - Dyspnoea [None]
  - Nausea [None]
  - Feeling abnormal [None]
  - Disorientation [None]
  - Anxiety [None]
  - Crying [None]
  - Musculoskeletal chest pain [None]

NARRATIVE: CASE EVENT DATE: 20170801
